FAERS Safety Report 15306968 (Version 2)
Quarter: 2018Q3

REPORT INFORMATION
  Report Type: Spontaneous
  Country: US (occurrence: US)
  Receive Date: 20180822
  Receipt Date: 20180827
  Transmission Date: 20181010
  Serious: Yes (Hospitalization, Other)
  Sender: FDA-Public Use
  Company Number: US-PFIZER INC-2018332769

PATIENT
  Age: 63 Year
  Sex: Female

DRUGS (9)
  1. CLINDAMYCIN PHOSPHATE. [Suspect]
     Active Substance: CLINDAMYCIN PHOSPHATE
     Indication: HIDRADENITIS
     Dosage: UNK
  2. DAPSONE. [Concomitant]
     Active Substance: DAPSONE
     Indication: HIDRADENITIS
     Dosage: UNK
     Route: 061
  3. ROSUVASTATIN. [Concomitant]
     Active Substance: ROSUVASTATIN
     Indication: HYPERLIPIDAEMIA
     Dosage: UNK
  4. SOLIFENACIN [Concomitant]
     Active Substance: SOLIFENACIN
     Dosage: UNK
  5. RIFAMPIN. [Suspect]
     Active Substance: RIFAMPIN
     Indication: HIDRADENITIS
     Dosage: 300 MG, 2X/DAY
  6. GENTAMICIN. [Concomitant]
     Active Substance: GENTAMICIN
     Indication: HIDRADENITIS
     Dosage: UNK
     Route: 061
  7. LISINOPRIL. [Concomitant]
     Active Substance: LISINOPRIL
     Indication: HYPERTENSION
     Dosage: UNK
  8. ASPIRIN. [Concomitant]
     Active Substance: ASPIRIN
     Dosage: UNK
  9. ATENOLOL. [Concomitant]
     Active Substance: ATENOLOL
     Indication: HYPERTENSION
     Dosage: UNK

REACTIONS (2)
  - Clostridium difficile infection [Unknown]
  - Irritable bowel syndrome [Unknown]
